FAERS Safety Report 10007934 (Version 2)
Quarter: 2014Q1

REPORT INFORMATION
  Report Type: Spontaneous
  Country: US (occurrence: US)
  Receive Date: 20140313
  Receipt Date: 20140313
  Transmission Date: 20141002
  Serious: Yes (Other)
  Sender: FDA-Public Use
  Company Number: PHHY2014US018479

PATIENT
  Age: 75 Year
  Sex: Male

DRUGS (20)
  1. BACLOFEN INTRATHECAL [Suspect]
     Indication: PAIN
     Dosage: 129.8 UG, DAILY
     Route: 037
     Dates: start: 2010
  2. BACLOFEN INTRATHECAL [Suspect]
     Dosage: 1.20 UG, DAILY
     Route: 037
     Dates: start: 20140206
  3. BUPROPION HCL [Suspect]
     Dosage: 1 DF (1 TABLET), BID
     Route: 048
  4. GABAPENTIN [Suspect]
     Dosage: 1 DF(1 CAPSULE), BID
     Route: 048
  5. MONTELUKAST SODIUM [Suspect]
     Dosage: 1 DF (1 TABLET), QD
     Route: 048
  6. CETIRIZINE HYDROCHLORIDE [Suspect]
     Dosage: UNK UKN, UNK
     Route: 048
  7. NAPROXEN TABLETS USP [Suspect]
     Dosage: UNK UKN, UNK
     Route: 048
  8. BUPIVACAINE [Suspect]
     Dosage: 19.47 MG, DAILY
     Route: 037
  9. BUPIVACAINE [Suspect]
     Dosage: 0.180 MG, DAILY
     Route: 037
     Dates: start: 20140206
  10. DILAUDID [Suspect]
     Dosage: 1.298 MG, DAILY
     Route: 037
  11. DILAUDID [Suspect]
     Dosage: 0.012 MG, DAILY
     Route: 037
     Dates: start: 20140206
  12. SENNA [Suspect]
     Dosage: 8.6 MG, UNK
     Route: 048
  13. MAGNESIA [MILK OF] [Suspect]
     Dosage: 1 DF (1 TABLET), QD
     Route: 048
  14. CELEXA [Suspect]
     Dosage: UNK UKN, UNK
     Route: 048
  15. ANALGESICS [Suspect]
     Dosage: UNK UKN, UNK
  16. BIOTIN [Suspect]
     Dosage: UNK UKN, UNK
     Route: 048
  17. CALMOSEPTINE [Suspect]
     Dosage: UNK UKN, UNK (0.44-20.625%)
  18. GUAIFENESIN [Suspect]
     Dosage: UNK UKN, UNK
     Route: 048
  19. MORPHINE SULFATE [Suspect]
     Dosage: UNK UKN, UNK
     Route: 048
  20. MS CONTIN [Suspect]
     Dosage: 1 DF (1 TABLET), BID
     Route: 048

REACTIONS (8)
  - Blister [Unknown]
  - Fall [Unknown]
  - Rib fracture [Unknown]
  - Performance status decreased [Unknown]
  - Malnutrition [Unknown]
  - Gait disturbance [Unknown]
  - Quality of life decreased [Unknown]
  - Pain [Not Recovered/Not Resolved]
